FAERS Safety Report 5220653-8 (Version None)
Quarter: 2007Q1

REPORT INFORMATION
  Report Type: 
  Country: None (occurrence: None)
  Receive Date: 20070126
  Receipt Date: 20070117
  Transmission Date: 20070707
  Serious: Yes (Other)
  Sender: FDA-Public Use
  Company Number: US-JNJFOC-20061106079

PATIENT
  Sex: Female
  Weight: 68.04 kg

DRUGS (12)
  1. DURAGESIC-100 [Suspect]
     Indication: BACK PAIN
     Route: 062
  2. FENTANYL TRANSDERMAL SYSTEM [Suspect]
     Indication: BACK PAIN
     Route: 062
  3. LAMICTAL [Concomitant]
     Indication: PAIN
     Dosage: 3 AT NIGHT, TOTAL DOSE = 75.0MG
     Route: 048
  4. GABAPENTIN [Concomitant]
     Indication: PAIN
     Dosage: TOTAL DOSE = 600MG
     Route: 048
  5. HYDROCHLOROTHIAZIDE [Concomitant]
     Indication: HYPERTENSION
     Route: 048
  6. POTASSIUM CHLORIDE [Concomitant]
     Route: 048
  7. PENTOXIFYLLINE [Concomitant]
     Indication: MUSCLE SPASMS
     Route: 048
  8. MECLIZINE [Concomitant]
     Indication: DIZZINESS
     Dosage: AT NIGHT
     Route: 048
  9. LIPITON [Concomitant]
     Indication: BLOOD CHOLESTEROL INCREASED
     Route: 048
  10. ARTHROTEC [Concomitant]
     Indication: ARTHRITIS
     Route: 048
  11. XALATAN [Concomitant]
     Indication: GLAUCOMA
     Route: 031
  12. ASPRIN [Concomitant]
     Indication: ANTICOAGULANT THERAPY
     Route: 048

REACTIONS (3)
  - DYSGEUSIA [None]
  - NAUSEA [None]
  - STRESS URINARY INCONTINENCE [None]
